FAERS Safety Report 9425897 (Version 2)
Quarter: 2013Q4

REPORT INFORMATION
  Report Type: Spontaneous
  Country: US (occurrence: US)
  Receive Date: 20130729
  Receipt Date: 20131008
  Transmission Date: 20140711
  Serious: Yes (Hospitalization)
  Sender: FDA-Public Use
  Company Number: US-UCBSA-092372

PATIENT
  Age: 54 Year
  Sex: Male
  Weight: 81.81 kg

DRUGS (7)
  1. VIMPAT [Suspect]
     Indication: CONVULSION
     Route: 048
     Dates: start: 201307, end: 201307
  2. VIMPAT [Suspect]
     Indication: CONVULSION
     Route: 048
     Dates: start: 201305, end: 201307
  3. VIMPAT [Suspect]
     Indication: CONVULSION
     Dates: start: 2013
  4. VIMPAT (IV) [Suspect]
     Indication: CONVULSION
     Route: 042
     Dates: start: 201307
  5. DILANTIN [Concomitant]
     Indication: CONVULSION
     Route: 048
  6. DEPAKOTE [Concomitant]
     Indication: CONVULSION
     Route: 048
  7. ZONEGRAN [Concomitant]

REACTIONS (3)
  - Grand mal convulsion [Recovered/Resolved]
  - Convulsion [Recovered/Resolved]
  - Overdose [Unknown]
